FAERS Safety Report 7453855-0 (Version None)
Quarter: 2011Q2

REPORT INFORMATION
  Report Type: 
  Country: None (occurrence: None)
  Receive Date: 20110502
  Receipt Date: 20110427
  Transmission Date: 20111010
  Serious: Yes (Death, Life-Threatening, Hospitalization)
  Sender: FDA-Public Use
  Company Number: US-AMGEN LTD.-KDC407090

PATIENT
  Age: 66 Year
  Sex: Female
  Weight: 119.9 kg

DRUGS (14)
  1. FOLINIC ACID [Concomitant]
     Dosage: 850 MG, Q2WK
     Route: 042
     Dates: start: 20100217, end: 20100331
  2. POTASSIUM [Concomitant]
  3. FERROUS SULFATE TAB [Concomitant]
  4. CIPROFLOXACIN HYDROCHLORIDE [Concomitant]
     Dosage: 500 MG, BID
     Dates: start: 20100317, end: 20100319
  5. FLUOROURACIL [Concomitant]
     Dosage: UNK UNK, Q2WK
     Route: 042
     Dates: start: 20100217, end: 20100402
  6. ASPIRIN [Concomitant]
  7. DOXYCYCLINE [Concomitant]
     Dosage: 100 MG, BID
     Dates: start: 20100217, end: 20100312
  8. IRINOTECAN [Concomitant]
     Dosage: 330 MG, Q2WK
     Route: 042
     Dates: start: 20100217, end: 20100331
  9. FUROSEMIDE [Concomitant]
     Dosage: 20 MG, QD
     Route: 048
     Dates: start: 20100402
  10. LOPERAMIDE HYDROCHLORIDE [Concomitant]
     Dosage: 2 MG, Q4H
     Route: 048
     Dates: start: 20100407
  11. MULTI-VITAMINS [Concomitant]
  12. LEVOTHYROXINE SODIUM [Concomitant]
  13. PANITUMUMAB [Suspect]
     Indication: COLORECTAL CANCER
     Dosage: 640 MG, Q2WK
     Route: 042
     Dates: start: 20100217, end: 20100331
  14. MAGNESIUM [Concomitant]

REACTIONS (5)
  - ASTHENIA [None]
  - CARDIOMYOPATHY [None]
  - DEHYDRATION [None]
  - CARDIOGENIC SHOCK [None]
  - RESPIRATORY FAILURE [None]
